FAERS Safety Report 8942506 (Version 1)
Quarter: 2012Q4

REPORT INFORMATION
  Report Type: Spontaneous
  Country: NO (occurrence: None)
  Receive Date: 20121121
  Receipt Date: 20121121
  Transmission Date: 20130627
  Serious: Yes (Life-Threatening)
  Sender: FDA-Public Use
  Company Number: 1485186

PATIENT
  Age: 50 Year
  Sex: Female

DRUGS (2)
  1. OXALIPLATIN [Suspect]
     Indication: ADJUVANT THERAPY
     Route: 042
  2. GLUCOSE [Concomitant]

REACTIONS (6)
  - Confusional state [None]
  - Dyspnoea [None]
  - Hypersensitivity [None]
  - Anxiety [None]
  - Tachycardia [None]
  - Presyncope [None]
